FAERS Safety Report 8291422-X (Version None)
Quarter: 2012Q2

REPORT INFORMATION
  Report Type: 
  Country: None (occurrence: None)
  Receive Date: 20120417
  Receipt Date: 20120405
  Transmission Date: 20120825
  Serious: Yes (Hospitalization)
  Sender: FDA-Public Use
  Company Number: FR-ROCHE-726736

PATIENT
  Sex: Male
  Weight: 65 kg

DRUGS (12)
  1. PACLITAXEL [Suspect]
     Indication: NON-SMALL CELL LUNG CANCER
     Dosage: LAST DOSE PRIOR TO SAE: 02 SEP 2010
     Route: 042
     Dates: start: 20100531, end: 20100923
  2. AVASTIN [Suspect]
     Indication: NON-SMALL CELL LUNG CANCER
     Dosage: LAST DOSE PROR TO SAE: 02 SEPTEMBER 2010
     Route: 042
     Dates: start: 20100531, end: 20100923
  3. OXYCONTIN [Concomitant]
     Route: 048
     Dates: start: 20100101, end: 20100909
  4. RABEPRAZOLE SODIUM [Concomitant]
     Route: 048
  5. MORPHINE SULFATE [Concomitant]
  6. OXYCODONE HCL [Concomitant]
     Dosage: TDD: 20 TO 40 MG
     Route: 048
     Dates: start: 20100401, end: 20100909
  7. CATAPRES [Concomitant]
     Dosage: TOTAL DAILY DOSE REPORTED AS 0.15 TO 0.3 MG
     Route: 042
     Dates: start: 20100909, end: 20100910
  8. TERCIAN [Concomitant]
     Dosage: TOTAL DAILY DOSE REPORTED AS 5 TO 7 GM
     Route: 048
  9. TRANSIPEG (FRANCE) [Concomitant]
     Dosage: TOTAL DAILY DOSE REPORTED AS 12 TO 24 GM
     Route: 048
  10. LASIX [Concomitant]
     Route: 048
  11. ACETAMINOPHEN [Concomitant]
     Dosage: TDD: 500 TO 3 GM
     Route: 048
  12. CARBOPLATIN [Suspect]
     Indication: NON-SMALL CELL LUNG CANCER
     Dosage: DOSE: 6 AUC.  LAST DOSE PRIOR TO SAE: 02 SEP 2010.
     Route: 042
     Dates: start: 20100531, end: 20100923

REACTIONS (2)
  - FEBRILE BONE MARROW APLASIA [None]
  - CELLULITIS [None]
